FAERS Safety Report 11190132 (Version 1)
Quarter: 2015Q2

REPORT INFORMATION
  Report Type: Spontaneous
  Country: US (occurrence: None)
  Receive Date: 20150612
  Receipt Date: 20150612
  Transmission Date: 20150821
  Serious: No
  Sender: FDA-Public Use
  Company Number: None

PATIENT
  Age: 51 Year
  Sex: Female
  Weight: 95.26 kg

DRUGS (1)
  1. GLUMETZA [Suspect]
     Active Substance: METFORMIN HYDROCHLORIDE
     Indication: DIABETES MELLITUS
     Route: 048
     Dates: start: 20150522, end: 20150522

REACTIONS (5)
  - Dizziness [None]
  - Dry mouth [None]
  - Headache [None]
  - Unevaluable event [None]
  - Photophobia [None]

NARRATIVE: CASE EVENT DATE: 20150522
